FAERS Safety Report 6337486-1 (Version None)
Quarter: 2009Q3

REPORT INFORMATION
  Report Type: 
  Country: None (occurrence: None)
  Receive Date: 20090902
  Receipt Date: 20090828
  Transmission Date: 20100115
  Serious: Yes (Hospitalization)
  Sender: FDA-Public Use
  Company Number: ES-TEVA-207688ISR

PATIENT
  Age: 79 Year
  Sex: Female

DRUGS (6)
  1. CARBIDOPA + LEVODOPA [Suspect]
     Indication: PARKINSON'S DISEASE
     Dosage: 25/250 MG
     Route: 048
     Dates: start: 20080819, end: 20080820
  2. AMITRIPTYLINE [Suspect]
     Indication: NEURALGIA
     Route: 048
     Dates: end: 20080820
  3. FENTANYL [Suspect]
     Indication: NEURALGIA
     Route: 062
     Dates: start: 20080818, end: 20080820
  4. FENTANYL [Concomitant]
     Dates: start: 20080501, end: 20080817
  5. FENTANYL [Concomitant]
     Route: 062
     Dates: start: 20080414, end: 20080501
  6. FENTANYL [Concomitant]
     Route: 062
     Dates: start: 20080328, end: 20080413

REACTIONS (1)
  - RESPIRATORY FAILURE [None]
